FAERS Safety Report 25627643 (Version 1)
Quarter: 2025Q3

REPORT INFORMATION
  Report Type: Other
  Country: GB (occurrence: GB)
  Receive Date: 20250731
  Receipt Date: 20250731
  Transmission Date: 20251021
  Serious: Yes (Other)
  Sender: MACLEODS
  Company Number: None

PATIENT

DRUGS (2)
  1. ROSUVASTATIN [Suspect]
     Active Substance: ROSUVASTATIN
     Indication: Product used for unknown indication
     Dosage: 5MG
     Route: 065
     Dates: start: 2025
  2. ROSUVASTATIN [Suspect]
     Active Substance: ROSUVASTATIN
     Route: 065
     Dates: end: 20250712

REACTIONS (3)
  - Pain in jaw [Recovered/Resolved]
  - Trigeminal neuralgia [Unknown]
  - Jaw clicking [Unknown]

NARRATIVE: CASE EVENT DATE: 20250512
